FAERS Safety Report 7778259-2 (Version None)
Quarter: 2011Q3

REPORT INFORMATION
  Report Type: 
  Country: None (occurrence: None)
  Receive Date: 20110926
  Receipt Date: 20110921
  Transmission Date: 20111222
  Serious: Yes (Other)
  Sender: FDA-Public Use
  Company Number: FR-BAYER-2011-089788

PATIENT
  Age: 58 Year
  Sex: Female

DRUGS (1)
  1. ULTRAVIST 150 [Suspect]
     Indication: IMAGING PROCEDURE
     Dosage: 70 ML, ONCE
     Route: 042
     Dates: start: 20110907, end: 20110907

REACTIONS (3)
  - EXTRAVASATION [None]
  - INJECTION SITE PAIN [None]
  - INDURATION [None]
